FAERS Safety Report 10278549 (Version 2)
Quarter: 2014Q3

REPORT INFORMATION
  Report Type: Report from Study
  Country: JP (occurrence: JP)
  Receive Date: 20140704
  Receipt Date: 20140812
  Transmission Date: 20150326
  Serious: Yes (Death, Hospitalization)
  Sender: FDA-Public Use
  Company Number: JP-JNJFOC-20140701340

PATIENT
  Age: 70 Year
  Sex: Male
  Weight: 70 kg

DRUGS (21)
  1. DECADRON [Concomitant]
     Active Substance: DEXAMETHASONE
     Indication: LYMPHOMA
     Route: 065
     Dates: start: 20130120, end: 20130123
  2. METHYCOBAL [Concomitant]
     Active Substance: METHYLCOBALAMIN
     Route: 048
     Dates: start: 20130520, end: 20140110
  3. LASIX [Concomitant]
     Active Substance: FUROSEMIDE
     Indication: LYMPHOMA
     Route: 065
     Dates: start: 20140122, end: 20140123
  4. CYLOCIDE [Suspect]
     Active Substance: CYTARABINE
     Indication: LYMPHOMA
     Route: 065
     Dates: start: 20131125, end: 20131126
  5. MAXIPIME [Concomitant]
     Active Substance: CEFEPIME HYDROCHLORIDE
     Indication: PROPHYLAXIS
     Route: 065
     Dates: start: 20131126, end: 20131203
  6. RASBURICASE [Concomitant]
     Active Substance: RASBURICASE
     Indication: PROPHYLAXIS
     Route: 065
     Dates: start: 20140122, end: 20140122
  7. ITRIZOLE [Suspect]
     Active Substance: ITRACONAZOLE
     Indication: ANTIFUNGAL PROPHYLAXIS
     Route: 048
     Dates: start: 20131129, end: 20131213
  8. ETOPOSIDE. [Suspect]
     Active Substance: ETOPOSIDE
     Indication: LYMPHOMA
     Route: 065
     Dates: start: 20131125, end: 20131129
  9. GRAN [Concomitant]
     Active Substance: FILGRASTIM
     Indication: NEUTROPHIL COUNT DECREASED
     Route: 065
     Dates: start: 20131130, end: 20131210
  10. VENOGLOBULIN-IH [Concomitant]
     Route: 065
     Dates: start: 20131204, end: 20131205
  11. ZYLORIC [Concomitant]
     Active Substance: ALLOPURINOL
     Route: 048
     Dates: start: 20130514, end: 20140110
  12. MEROPENEM HYDRATE [Concomitant]
     Active Substance: MEROPENEM
     Route: 065
     Dates: start: 20131204, end: 20131219
  13. RITUXAN [Concomitant]
     Active Substance: RITUXIMAB
     Indication: LYMPHOMA
     Route: 065
     Dates: start: 20131130, end: 20131130
  14. TAKEPRON [Concomitant]
     Active Substance: LANSOPRAZOLE
     Route: 048
     Dates: start: 20130531, end: 20140118
  15. VANCOMYCIN [Concomitant]
     Active Substance: VANCOMYCIN
     Route: 065
     Dates: start: 20131205, end: 20131219
  16. SOLU-CORTEF [Concomitant]
     Active Substance: HYDROCORTISONE SODIUM SUCCINATE
     Indication: LYMPHOMA
     Route: 065
     Dates: start: 20131130, end: 20131130
  17. IFOMIDE [Suspect]
     Active Substance: IFOSFAMIDE
     Indication: LYMPHOMA
     Route: 065
     Dates: start: 20131125, end: 20131129
  18. BIO-THREE [Concomitant]
     Active Substance: HERBALS
     Route: 048
     Dates: start: 20130608, end: 20140110
  19. MAGMITT [Concomitant]
     Active Substance: MAGNESIUM OXIDE
     Route: 048
     Dates: start: 20130518, end: 20140110
  20. MUCOSTA [Concomitant]
     Active Substance: REBAMIPIDE
     Route: 048
     Dates: start: 20130514, end: 20140110
  21. VENOGLOBULIN-IH [Concomitant]
     Route: 065
     Dates: start: 20131206, end: 20131206

REACTIONS (4)
  - Device related infection [Recovered/Resolved]
  - Multi-organ failure [Fatal]
  - Lymphoma [Fatal]
  - Neutrophil count decreased [Recovered/Resolved]

NARRATIVE: CASE EVENT DATE: 20131130
